FAERS Safety Report 7809326-2 (Version None)
Quarter: 2011Q4

REPORT INFORMATION
  Report Type: 
  Country: None (occurrence: None)
  Receive Date: 20111006
  Receipt Date: 20110923
  Transmission Date: 20120403
  Serious: Yes (Hospitalization)
  Sender: FDA-Public Use
  Company Number: 2011AP002240

PATIENT
  Age: 86 Year
  Sex: Male

DRUGS (9)
  1. AMLODIPINE [Concomitant]
  2. FLUTICASONE PROPIONATE W/ SALMETEROL (FLUTICASONE PROPIONATE W/ SALMET [Concomitant]
  3. CLOPIDOGREL [Suspect]
     Indication: ANTIPLATELET THERAPY
  4. ACENOCOUMAROL (ACENOCOUMAROL) [Suspect]
     Indication: ANTICOAGULANT THERAPY
  5. FUROSEMIDE [Concomitant]
  6. FINASTERIDE [Concomitant]
  7. ATORVASTATIN [Concomitant]
  8. PREDNISONE TAB [Concomitant]
  9. OMEPRAZOLE [Concomitant]

REACTIONS (2)
  - HAEMOBILIA [None]
  - GALLBLADDER NECROSIS [None]
